FAERS Safety Report 24291739 (Version 5)
Quarter: 2024Q4

REPORT INFORMATION
  Report Type: Spontaneous
  Country: US (occurrence: US)
  Receive Date: 20240906
  Receipt Date: 20241029
  Transmission Date: 20250115
  Serious: No
  Sender: PFIZER
  Company Number: US-PFIZER INC-202400245963

PATIENT
  Age: 43 Year
  Sex: Female
  Weight: 102.06 kg

DRUGS (8)
  1. GENOTROPIN [Suspect]
     Active Substance: SOMATROPIN
     Indication: Growth hormone deficiency
     Dosage: 0.7MG 2 DAYS PER WEEK
  2. METHOTREXATE [Suspect]
     Active Substance: METHOTREXATE
     Indication: Psoriatic arthropathy
     Dosage: TAKE 8 TABLETS ONCE A WEEK
  3. CABERGOLINE [Concomitant]
     Active Substance: CABERGOLINE
     Indication: Prolactin-producing pituitary tumour
     Dosage: TAKE 3 TABLETS TWICE A WEEK
  4. CITALOPRAM [Concomitant]
     Active Substance: CITALOPRAM
     Indication: Anxiety
     Dosage: 20 MG, 1X/DAY
  5. CITALOPRAM [Concomitant]
     Active Substance: CITALOPRAM
     Indication: Depression
  6. LEVOTHYROXINE [Concomitant]
     Active Substance: LEVOTHYROXINE
     Indication: Thyroid disorder
     Dosage: 125 UG, 1X/DAY
  7. ESTRADIOL [Concomitant]
     Active Substance: ESTRADIOL
     Indication: Oestradiol decreased
     Dosage: 1.5 MG, 1X/DAY
  8. ENBREL [Concomitant]
     Active Substance: ETANERCEPT
     Indication: Psoriatic arthropathy
     Dosage: 50 MG, 1X/DAY

REACTIONS (3)
  - Alopecia [Unknown]
  - Drug dose omission by device [Unknown]
  - Expired device used [Unknown]
